FAERS Safety Report 16643742 (Version 1)
Quarter: 2019Q3

REPORT INFORMATION
  Report Type: Spontaneous
  Country: US (occurrence: US)
  Receive Date: 20190729
  Receipt Date: 20190729
  Transmission Date: 20191004
  Serious: No
  Sender: FDA-Public Use
  Company Number: US-PRINSTON PHARMACEUTICAL INC.-2018PRN01668

PATIENT
  Sex: Female

DRUGS (3)
  1. CLONAZEPAM. [Suspect]
     Active Substance: CLONAZEPAM
     Dosage: 2 MG, 1X/DAY AT NIGHT
     Dates: start: 201801, end: 2018
  2. CLONAZEPAM. [Suspect]
     Active Substance: CLONAZEPAM
     Indication: PANIC DISORDER
     Dosage: 2 MG, AS NEEDED
     Dates: end: 201801
  3. CLONAZEPAM. [Suspect]
     Active Substance: CLONAZEPAM
     Dosage: ^WEANING DOSE^
     Dates: start: 2018, end: 201809

REACTIONS (3)
  - Headache [Unknown]
  - Intentional product misuse [Not Recovered/Not Resolved]
  - Maternal exposure during breast feeding [Unknown]

NARRATIVE: CASE EVENT DATE: 201801
